FAERS Safety Report 7229732-7 (Version None)
Quarter: 2011Q1

REPORT INFORMATION
  Report Type: 
  Country: None (occurrence: None)
  Receive Date: 20110117
  Receipt Date: 20110111
  Transmission Date: 20110831
  Serious: Yes (Hospitalization)
  Sender: FDA-Public Use
  Company Number: GR-BAXTER-2011BH000844

PATIENT
  Age: 43 Year
  Sex: Female
  Weight: 62 kg

DRUGS (19)
  1. GRANULOKINE [Concomitant]
     Indication: BONE MARROW FAILURE
     Route: 065
     Dates: start: 20060722, end: 20060728
  2. GRANULOKINE [Concomitant]
     Route: 065
     Dates: start: 20061102, end: 20061105
  3. GRANULOKINE [Concomitant]
     Route: 065
     Dates: start: 20060928, end: 20061001
  4. METHOTREXATE [Suspect]
     Indication: BREAST CANCER
     Route: 042
     Dates: start: 20060713, end: 20060713
  5. METHOTREXATE [Suspect]
     Route: 042
     Dates: start: 20060802, end: 20060817
  6. FENISTIL [Concomitant]
     Indication: PREMEDICATION
     Route: 042
     Dates: start: 20060601, end: 20061109
  7. CYCLOPHOSPHAMIDE [Suspect]
     Indication: BREAST CANCER
     Route: 042
     Dates: start: 20060713, end: 20060713
  8. ZOFRON [Concomitant]
     Indication: PREMEDICATION
     Route: 042
     Dates: start: 20060601, end: 20061109
  9. NEULASTA [Concomitant]
     Indication: PROPHYLAXIS
     Route: 065
     Dates: start: 20060601, end: 20060617
  10. GRANULOKINE [Concomitant]
     Route: 065
     Dates: start: 20060802, end: 20060808
  11. CYCLOPHOSPHAMIDE [Suspect]
     Route: 042
     Dates: start: 20060802, end: 20060817
  12. FLUOROURACIL [Suspect]
     Route: 042
     Dates: start: 20060802, end: 20060817
  13. DEXAMETHASONE SODIUM PHOSPHATE [Concomitant]
     Indication: PREMEDICATION
     Route: 042
     Dates: start: 20060601, end: 20061109
  14. FLUOROURACIL [Suspect]
     Indication: BREAST CANCER
     Route: 042
     Dates: start: 20060713, end: 20060713
  15. ZANTAC [Concomitant]
     Indication: PREMEDICATION
     Route: 042
     Dates: start: 20060601, end: 20061109
  16. VENOFER [Concomitant]
     Indication: ANAEMIA
     Route: 042
     Dates: start: 20060713, end: 20061109
  17. GRANULOKINE [Concomitant]
     Route: 065
     Dates: start: 20060831, end: 20060908
  18. EPOETIN ALFA [Concomitant]
     Indication: ANAEMIA
     Route: 065
     Dates: start: 20060713, end: 20061109
  19. GRANULOKINE [Concomitant]
     Route: 065
     Dates: start: 20061002, end: 20061007

REACTIONS (2)
  - FEBRILE NEUTROPENIA [None]
  - TOOTH DISORDER [None]
